FAERS Safety Report 19283537 (Version 2)
Quarter: 2021Q2

REPORT INFORMATION
  Report Type: Report from Study
  Country: US (occurrence: US)
  Receive Date: 20210520
  Receipt Date: 20210611
  Transmission Date: 20210717
  Serious: No
  Sender: FDA-Public Use
  Company Number: US-ASTRAZENECA-2021A347095

PATIENT

DRUGS (1)
  1. LYNPARZA [Suspect]
     Active Substance: OLAPARIB
     Route: 048

REACTIONS (5)
  - Anxiety [Unknown]
  - Influenza [Unknown]
  - Nasopharyngitis [Unknown]
  - Affective disorder [Unknown]
  - Back pain [Unknown]
